FAERS Safety Report 10090670 (Version 1)
Quarter: 2014Q2

REPORT INFORMATION
  Report Type: Spontaneous
  Country: US (occurrence: None)
  Receive Date: 20140417
  Receipt Date: 20140417
  Transmission Date: 20141212
  Serious: No
  Sender: FDA-Public Use
  Company Number: INS201403-000041

PATIENT
  Age: 62 Year
  Sex: Male

DRUGS (2)
  1. SUBSYS [Suspect]
     Indication: BREAKTHROUGH PAIN
     Route: 060
  2. MORPHINE (MORPHINE) (MORPHINE) [Concomitant]

REACTIONS (1)
  - Drug effect incomplete [None]
